FAERS Safety Report 20509862 (Version 6)
Quarter: 2022Q1

REPORT INFORMATION
  Report Type: Report from Study
  Country: JP (occurrence: JP)
  Receive Date: 20220224
  Receipt Date: 20220328
  Transmission Date: 20220423
  Serious: Yes (Hospitalization)
  Sender: FDA-Public Use
  Company Number: JP-AMGEN-JPNCT2022031806

PATIENT
  Age: 71 Year
  Sex: Female
  Weight: 59.2 kg

DRUGS (24)
  1. AMG-510 [Suspect]
     Active Substance: AMG-510
     Indication: Colorectal cancer stage IV
     Dosage: 960 MILLIGRAM
     Route: 048
     Dates: start: 20220221
  2. AMG-510 [Suspect]
     Active Substance: AMG-510
     Indication: K-ras gene mutation
     Dosage: UNK
     Route: 048
     Dates: start: 20220225
  3. PANITUMUMAB [Suspect]
     Active Substance: PANITUMUMAB
     Indication: Colorectal cancer stage IV
     Dosage: 348.6 MILLIGRAM
     Route: 042
     Dates: start: 20220221
  4. PANITUMUMAB [Suspect]
     Active Substance: PANITUMUMAB
     Indication: K-ras gene mutation
     Dosage: UNK
     Route: 042
     Dates: start: 20220307
  5. IRINOTECAN [Suspect]
     Active Substance: IRINOTECAN
     Indication: Colorectal cancer stage IV
     Dosage: 279 MILLIGRAM
     Route: 042
     Dates: start: 20220221
  6. IRINOTECAN [Suspect]
     Active Substance: IRINOTECAN
     Indication: K-ras gene mutation
  7. LEUCOVORIN CALCIUM [Suspect]
     Active Substance: LEUCOVORIN CALCIUM
     Indication: Colorectal cancer stage IV
     Dosage: 310 MILLIGRAM
     Route: 042
     Dates: start: 20220221
  8. LEUCOVORIN CALCIUM [Suspect]
     Active Substance: LEUCOVORIN CALCIUM
     Indication: K-ras gene mutation
  9. FLUOROURACIL [Suspect]
     Active Substance: FLUOROURACIL
     Indication: Colorectal cancer stage IV
     Dosage: 621 MILLIGRAM
     Route: 042
     Dates: start: 20220221
  10. FLUOROURACIL [Suspect]
     Active Substance: FLUOROURACIL
     Indication: K-ras gene mutation
     Dosage: UNK
     Route: 042
     Dates: start: 20220307
  11. NEPAFENAC [Concomitant]
     Active Substance: NEPAFENAC
     Dosage: 1 GTT DROPS
     Route: 047
     Dates: start: 20220117
  12. SITAGLIPTIN PHOSPHATE [Concomitant]
     Active Substance: SITAGLIPTIN PHOSPHATE
     Dosage: 50 MILLIGRAM
     Route: 048
     Dates: start: 2021
  13. CYANOCOBALAMIN [Concomitant]
     Active Substance: CYANOCOBALAMIN
     Dosage: 1 GTT DROPS
     Route: 047
     Dates: start: 20220117
  14. PALONOSETRON HYDROCHLORIDE [Concomitant]
     Active Substance: PALONOSETRON HYDROCHLORIDE
     Dosage: 0.75 MILLIGRAM
     Route: 042
     Dates: start: 20220221
  15. DEXAMETHASONE SODIUM PHOSPHATE [Concomitant]
     Active Substance: DEXAMETHASONE SODIUM PHOSPHATE
     Dosage: 9.9 MILLIGRAM
     Route: 042
     Dates: start: 20220221
  16. MINOCYCLINE HYDROCHLORIDE [Concomitant]
     Active Substance: MINOCYCLINE HYDROCHLORIDE
     Dosage: 50 MILLIGRAM
     Route: 048
     Dates: start: 20220221
  17. HEPARINOID [Concomitant]
     Dosage: 0.5 GRAM
     Route: 061
     Dates: start: 20220221
  18. METOCLOPRAMIDE HYDROCHLORIDE [Concomitant]
     Active Substance: METOCLOPRAMIDE HYDROCHLORIDE
     Dosage: 10 MILLIGRAM
     Route: 042
     Dates: start: 20220221, end: 20220221
  19. METFORMIN HYDROCHLORIDE [Concomitant]
     Active Substance: METFORMIN HYDROCHLORIDE
     Dosage: 500 MILLIGRAM
     Route: 048
     Dates: start: 2021
  20. MOSAPRIDE CITRATE [Concomitant]
     Active Substance: MOSAPRIDE CITRATE
     Dosage: 5 MILLIGRAM
     Route: 048
     Dates: start: 2020
  21. ZINC OXIDE [Concomitant]
     Active Substance: ZINC OXIDE
     Dosage: 1 GRAM
     Route: 061
     Dates: start: 2020
  22. APIXABAN [Concomitant]
     Active Substance: APIXABAN
     Dosage: 5 MILLIGRAM
     Route: 048
     Dates: start: 20220203
  23. LEVOFLOXACIN HEMIHYDRATE [Concomitant]
     Active Substance: LEVOFLOXACIN
     Dosage: 1 GTT DROPS
     Route: 047
     Dates: start: 20220117
  24. RINDERON A [Concomitant]
     Active Substance: BETAMETHASONE SODIUM PHOSPHATE\NEOMYCIN SULFATE
     Dosage: 1 GTT DROPS
     Route: 047
     Dates: start: 20220117

REACTIONS (1)
  - Tumour lysis syndrome [Recovered/Resolved]

NARRATIVE: CASE EVENT DATE: 20220222
